FAERS Safety Report 6253122-7 (Version None)
Quarter: 2009Q2

REPORT INFORMATION
  Report Type: 
  Country: None (occurrence: None)
  Receive Date: 20090629
  Receipt Date: 20090629
  Transmission Date: 20091009
  Serious: Yes (Life-Threatening)
  Sender: FDA-Public Use
  Company Number: None

PATIENT
  Age: 55 Year
  Sex: Female

DRUGS (2)
  1. PROZAC [Suspect]
     Indication: DEPRESSION
     Dosage: DURATION: A FEW MONTHS
  2. PROZAC [Suspect]
     Indication: GENERALISED ANXIETY DISORDER
     Dosage: DURATION: A FEW MONTHS

REACTIONS (6)
  - ALCOHOL USE [None]
  - BLOOD POTASSIUM DECREASED [None]
  - BLOOD SODIUM DECREASED [None]
  - ELECTROCARDIOGRAM CHANGE [None]
  - MENTAL STATUS CHANGES [None]
  - TREMOR [None]
